FAERS Safety Report 10058425 (Version 3)
Quarter: 2014Q2

REPORT INFORMATION
  Report Type: Spontaneous
  Country: GB (occurrence: GB)
  Receive Date: 20140404
  Receipt Date: 20140509
  Transmission Date: 20141212
  Serious: Yes (Other)
  Sender: FDA-Public Use
  Company Number: PHFR2014GB002509

PATIENT
  Age: 38 Year
  Sex: Female

DRUGS (9)
  1. GILENYA [Suspect]
     Indication: MULTIPLE SCLEROSIS
     Dosage: 0.5 MG, QD
     Route: 048
     Dates: start: 20130822, end: 20140310
  2. PREGABALIN [Concomitant]
  3. OMEPRAZOLE [Concomitant]
  4. HYDROXOCOBALAM [Concomitant]
  5. FUROSEMIDE [Concomitant]
  6. FLUOXETINE [Concomitant]
  7. FEXOFENADINE [Concomitant]
  8. DIAZEPAM [Concomitant]
  9. TRAMADOL HYDROCHLORIDE [Concomitant]

REACTIONS (3)
  - Menometrorrhagia [Recovering/Resolving]
  - Rash generalised [Recovered/Resolved]
  - Pruritus [Recovered/Resolved]
